FAERS Safety Report 21307493 (Version 1)
Quarter: 2022Q3

REPORT INFORMATION
  Report Type: Spontaneous
  Country: US (occurrence: US)
  Receive Date: 20220908
  Receipt Date: 20220908
  Transmission Date: 20221027
  Serious: Yes (Hospitalization, Other)
  Sender: FDA-Public Use
  Company Number: US-FreseniusKabi-FK202212278

PATIENT
  Age: 15 Year
  Sex: Male

DRUGS (5)
  1. ETOPOSIDE [Suspect]
     Active Substance: ETOPOSIDE
     Indication: Nongerminomatous germ cell tumour of the CNS
     Dosage: 6 CYCLES OF CHEMOTHERAPY PER THE CHILDREN^S ONCOLOGY GROUP ACNS 1123 PROTOCOL
  2. ETOPOSIDE [Suspect]
     Active Substance: ETOPOSIDE
     Dosage: TWO ROUNDS, WITH 21-DAY BREAK FOLLOWING EACH ROUND
  3. CARBOPLATIN [Suspect]
     Active Substance: CARBOPLATIN
     Indication: Nongerminomatous germ cell tumour of the CNS
     Dosage: 6 CYCLES OF CHEMOTHERAPY PER THE CHILDREN^S ONCOLOGY GROUP ACNS 1123 PROTOCOL
  4. CARBOPLATIN [Suspect]
     Active Substance: CARBOPLATIN
     Dosage: TWO ROUNDS, WITH 21-DAY BREAK FOLLOWING EACH ROUND
  5. IFOSFAMIDE [Suspect]
     Active Substance: IFOSFAMIDE
     Indication: Nongerminomatous germ cell tumour of the CNS
     Dosage: 6 CYCLES OF CHEMOTHERAPY PER THE CHILDREN^S ONCOLOGY GROUP ACNS 1123 PROTOCOL

REACTIONS (1)
  - Diabetes insipidus [Unknown]
